FAERS Safety Report 7277584-1 (Version None)
Quarter: 2011Q1

REPORT INFORMATION
  Report Type: 
  Country: None (occurrence: None)
  Receive Date: 20110207
  Receipt Date: 20110202
  Transmission Date: 20110831
  Serious: Yes (Life-Threatening, Hospitalization)
  Sender: FDA-Public Use
  Company Number: US-AMGEN-USASP2011006251

PATIENT
  Age: 42 Year
  Sex: Female

DRUGS (13)
  1. IMMUNOGLOBULINS [Concomitant]
  2. CEFEPIME [Concomitant]
  3. SENOKOT [Concomitant]
  4. RITUXIMAB [Concomitant]
  5. VANCOMYCIN [Concomitant]
  6. ALBUTEROL [Concomitant]
  7. NPLATE [Suspect]
     Indication: IDIOPATHIC THROMBOCYTOPENIC PURPURA
     Dosage: 3 A?G/KG, UNK
     Dates: start: 20101229, end: 20110112
  8. OXYCODONE HCL [Concomitant]
  9. FAMOTIDINE [Concomitant]
  10. OXYMETAZOLINE HCL [Concomitant]
  11. MINOLOX [Concomitant]
  12. ACYCLOVIR [Concomitant]
  13. LISINOPRIL [Concomitant]

REACTIONS (5)
  - PULMONARY EMBOLISM [None]
  - PLEURAL EFFUSION [None]
  - DEEP VEIN THROMBOSIS [None]
  - ABDOMINAL HERNIA [None]
  - LUNG NEOPLASM [None]
